FAERS Safety Report 9331461 (Version 2)
Quarter: 2013Q3

REPORT INFORMATION
  Report Type: Spontaneous
  Country: US (occurrence: None)
  Receive Date: 20130523
  Receipt Date: 20130730
  Transmission Date: 20140515
  Serious: Yes (Death, Hospitalization)
  Sender: FDA-Public Use
  Company Number: 2013036076

PATIENT
  Age: 32 Year
  Sex: Female

DRUGS (12)
  1. BERINERT [Suspect]
     Indication: HEREDITARY ANGIOEDEMA
     Route: 042
  2. CINRYSE [Suspect]
     Indication: PROPHYLAXIS
     Dosage: EVERY MONDAY/FRIDAY TWICE A WEEK.,IV.
     Dates: start: 20130429, end: 20130429
  3. CINRYSE [Suspect]
     Indication: HEREDITARY ANGIOEDEMA
     Dosage: EVERY MONDAY/FRIDAY TWICE A WEEK.,IV.
     Dates: start: 20130429, end: 20130429
  4. BENADRYL (DIPHENHYDRAMINE HYDROCHLORIDE) [Suspect]
  5. PHENERGAN [Suspect]
  6. DILAUDID (HYDROMORPHONE HYDROCHLORIDE) [Concomitant]
  7. FENTANYL (FENTANYL) [Concomitant]
  8. KLONOPIN (CLONAZEPAM) [Concomitant]
  9. AMBIEN (ZOLPIDEM TARTRATE) [Concomitant]
  10. SYNTHROID (LEVOTHYROXINE SODIUIM) [Concomitant]
  11. COLACE [Concomitant]
  12. FIRAZYR (ALL OTHER THERAPEUTIC PRODUCTS) [Concomitant]

REACTIONS (3)
  - Hereditary angioedema [None]
  - Completed suicide [None]
  - Overdose [None]
